FAERS Safety Report 9753893 (Version 2)
Quarter: 2013Q4

REPORT INFORMATION
  Report Type: Spontaneous
  Country: US (occurrence: US)
  Receive Date: 20131213
  Receipt Date: 20131213
  Transmission Date: 20140711
  Serious: No
  Sender: FDA-Public Use
  Company Number: US-GILEAD-2010-0027672

PATIENT
  Sex: Male
  Weight: 68.49 kg

DRUGS (4)
  1. LETAIRIS [Suspect]
     Indication: PULMONARY ARTERIAL HYPERTENSION
     Route: 048
     Dates: start: 20100225, end: 20100330
  2. LASIX [Concomitant]
  3. LISINOPRIL [Concomitant]
  4. POTASSIUM [Concomitant]

REACTIONS (1)
  - Oedema [Unknown]
